FAERS Safety Report 6099079-3 (Version None)
Quarter: 2009Q1

REPORT INFORMATION
  Report Type: 
  Country: None (occurrence: None)
  Receive Date: 20090302
  Receipt Date: 20090223
  Transmission Date: 20090719
  Serious: Yes (Disabling, Other)
  Sender: FDA-Public Use
  Company Number: GB-GILEAD-2009-0020522

PATIENT
  Age: 46 Year
  Sex: Female

DRUGS (2)
  1. TRUVADA [Suspect]
     Indication: HIV INFECTION
  2. EFAVIRENZ [Suspect]
     Indication: HIV INFECTION
     Route: 048
     Dates: start: 20080416, end: 20080618

REACTIONS (4)
  - ANXIETY [None]
  - HALLUCINATION [None]
  - LIVER FUNCTION TEST ABNORMAL [None]
  - PARANOIA [None]
